FAERS Safety Report 10187816 (Version 1)
Quarter: 2014Q2

REPORT INFORMATION
  Report Type: Spontaneous
  Country: US (occurrence: US)
  Receive Date: 20140522
  Receipt Date: 20140522
  Transmission Date: 20141212
  Serious: No
  Sender: FDA-Public Use
  Company Number: US-SA-2013SA106755

PATIENT
  Age: 67 Year
  Sex: Male

DRUGS (3)
  1. LANTUS [Suspect]
     Dosage: DOSE:80 UNIT(S)
     Route: 051
  2. HUMALOG [Suspect]
     Route: 065
  3. NOVOLIN [Suspect]
     Route: 065

REACTIONS (2)
  - Dizziness [Unknown]
  - Feeling abnormal [Unknown]
